FAERS Safety Report 8845193 (Version 2)
Quarter: 2012Q4

REPORT INFORMATION
  Report Type: Spontaneous
  Country: GB (occurrence: None)
  Receive Date: 20121015
  Receipt Date: 20121015
  Transmission Date: 20130627
  Serious: Yes (Hospitalization)
  Sender: FDA-Public Use
  Company Number: 2012GMK003963

PATIENT
  Age: 1 Year
  Sex: Male

DRUGS (2)
  1. MONTELUKAST [Suspect]
     Indication: WHEEZING
  2. FLUTICASONE PROPIONATE [Suspect]
     Indication: WHEEZING

REACTIONS (2)
  - Wheezing [None]
  - Disease recurrence [None]
